FAERS Safety Report 8393016 (Version 4)
Quarter: 2012Q4

REPORT INFORMATION
  Report Type: 
  Country: DE (occurrence: DE)
  Receive Date: 20120207
  Receipt Date: 20121026
  Transmission Date: 20130627
  Serious: Yes (Other)
  Sender: FDA-Public Use
  Company Number: PHHY2012DE008328

PATIENT
  Age: 80 Year
  Sex: Female
  Weight: 67 kg

DRUGS (5)
  1. ICL670A [Suspect]
     Indication: MYELODYSPLASTIC SYNDROME
     Dosage: 1000 mg, daily
     Route: 048
     Dates: start: 20101026
  2. HCT [Concomitant]
     Dosage: 12.5 mg, UNK
     Route: 065
     Dates: start: 20101216
  3. PREDNISOLON [Concomitant]
     Dosage: UNK UKN, UNK
     Route: 065
     Dates: start: 20100127
  4. CLEMASTINE [Concomitant]
     Dosage: UNK UKN, UNK
     Route: 065
     Dates: start: 20110127
  5. BLOOD TRANSFUSION, AUXILIARY PRODUCTS [Concomitant]
     Indication: ANAEMIA
     Dosage: 4 U, per month
     Route: 042
     Dates: start: 20100210

REACTIONS (2)
  - Abasia [Not Recovered/Not Resolved]
  - General physical health deterioration [Not Recovered/Not Resolved]
